FAERS Safety Report 13952783 (Version 1)
Quarter: 2017Q3

REPORT INFORMATION
  Report Type: Spontaneous
  Country: US (occurrence: US)
  Receive Date: 20170911
  Receipt Date: 20170911
  Transmission Date: 20171128
  Serious: Yes (Other)
  Sender: FDA-Public Use
  Company Number: US-TEVA-753483USA

PATIENT
  Sex: Female

DRUGS (1)
  1. FENTANYL. [Suspect]
     Active Substance: FENTANYL
     Route: 062
     Dates: start: 2016

REACTIONS (6)
  - Depressed level of consciousness [Recovered/Resolved]
  - Application site irritation [Unknown]
  - Application site swelling [Unknown]
  - Respiratory arrest [Recovered/Resolved]
  - Product adhesion issue [Unknown]
  - Application site erythema [Unknown]

NARRATIVE: CASE EVENT DATE: 2016
